FAERS Safety Report 15714241 (Version 2)
Quarter: 2018Q4

REPORT INFORMATION
  Report Type: Spontaneous
  Country: AT (occurrence: AT)
  Receive Date: 20181212
  Receipt Date: 20181219
  Transmission Date: 20190205
  Serious: Yes (Hospitalization)
  Sender: FDA-Public Use
  Company Number: AT-CELGENEUS-AUT-20181105637

PATIENT
  Age: 78 Year
  Sex: Female
  Weight: 48 kg

DRUGS (18)
  1. ABRAXANE [Suspect]
     Active Substance: PACLITAXEL
     Dosage: 142.11 MILLIGRAM
     Route: 041
     Dates: start: 20181005
  2. FEMARA [Concomitant]
     Active Substance: LETROZOLE
     Indication: BREAST CANCER
     Dosage: 2.5 MILLIGRAM
     Route: 048
     Dates: start: 20181029
  3. TRASTUZUMAB. [Concomitant]
     Active Substance: TRASTUZUMAB
     Indication: HER-2 POSITIVE BREAST CANCER
     Dosage: 384 MILLIGRAM
     Route: 041
     Dates: start: 20180810, end: 20181109
  4. PARKEMED [Concomitant]
     Active Substance: MEFENAMIC ACID
     Indication: ARTHRALGIA
     Route: 065
     Dates: start: 20180914
  5. PARKEMED [Concomitant]
     Active Substance: MEFENAMIC ACID
     Route: 065
  6. PARKEMED [Concomitant]
     Active Substance: MEFENAMIC ACID
     Route: 065
     Dates: start: 20181019
  7. KYTRIL [Concomitant]
     Active Substance: GRANISETRON HYDROCHLORIDE
     Indication: PRODUCT USED FOR UNKNOWN INDICATION
     Route: 065
     Dates: start: 20180928
  8. TRITTICO [Concomitant]
     Active Substance: TRAZODONE HYDROCHLORIDE
     Indication: PRODUCT USED FOR UNKNOWN INDICATION
     Route: 065
  9. ENTEROBENE [Concomitant]
     Indication: DIARRHOEA
     Route: 065
     Dates: start: 20181012, end: 20181117
  10. CIPROXIN [Concomitant]
     Active Substance: CIPROFLOXACIN
     Indication: PRODUCT USED FOR UNKNOWN INDICATION
     Route: 065
     Dates: start: 20181118
  11. ABRAXANE [Suspect]
     Active Substance: PACLITAXEL
     Dosage: 142.11 MILLIGRAM
     Route: 041
     Dates: end: 20181019
  12. TEMESTA [Concomitant]
     Indication: PRODUCT USED FOR UNKNOWN INDICATION
     Route: 065
  13. ABRAXANE [Suspect]
     Active Substance: PACLITAXEL
     Indication: BREAST CANCER
     Dosage: 142.11 MILLIGRAM
     Route: 041
     Dates: start: 20180928
  14. CALCIDURAN [Concomitant]
     Indication: PRODUCT USED FOR UNKNOWN INDICATION
     Route: 065
     Dates: start: 20181117, end: 20181118
  15. CLAVERSAL [Concomitant]
     Active Substance: MESALAMINE
     Indication: PRODUCT USED FOR UNKNOWN INDICATION
     Route: 065
  16. PERTUZUMAB. [Concomitant]
     Active Substance: PERTUZUMAB
     Indication: HER-2 POSITIVE BREAST CANCER
     Dosage: 840 MILLIGRAM
     Route: 041
     Dates: start: 20180810, end: 20180831
  17. XGEVA [Concomitant]
     Active Substance: DENOSUMAB
     Indication: PRODUCT USED FOR UNKNOWN INDICATION
     Route: 065
     Dates: start: 20180817
  18. ZOFRAN [Concomitant]
     Active Substance: ONDANSETRON HYDROCHLORIDE
     Indication: NAUSEA
     Route: 065
     Dates: start: 20180907

REACTIONS (2)
  - Abdominal pain upper [Not Recovered/Not Resolved]
  - Gastroenteritis radiation [Recovered/Resolved]

NARRATIVE: CASE EVENT DATE: 20181109
